FAERS Safety Report 4501214-2 (Version None)
Quarter: 2004Q4

REPORT INFORMATION
  Report Type: 
  Country: None (occurrence: None)
  Receive Date: 20041115
  Receipt Date: 20040720
  Transmission Date: 20050328
  Serious: Yes (Other)
  Sender: FDA-Public Use
  Company Number: PHNU2004DE02601

PATIENT
  Age: 31 Year
  Sex: Female
  Weight: 68 kg

DRUGS (11)
  1. SANDIMMUNE [Suspect]
     Indication: RENAL TRANSPLANT
     Dosage: 75 MG, BID
     Route: 048
     Dates: start: 19980507
  2. SANDIMMUNE [Suspect]
     Dosage: 125 MG, BID
     Route: 048
  3. PARTUSISTEN [Suspect]
     Indication: PREMATURE LABOUR
     Dosage: 4 AMP IN 24 HOURS
     Dates: start: 20040701
  4. FOLIC ACID [Concomitant]
     Dosage: 5 MG DAILY
     Route: 048
  5. MAGNESIUM [Concomitant]
  6. VITAMINS NOS [Concomitant]
  7. VIGANTOLETTEN ^BAYER^ [Concomitant]
     Dosage: 1000 MG DAILY
     Route: 048
  8. KENDURAL C [Concomitant]
     Dosage: 1 DF, BID
  9. METOPROLOL SUCCINATE [Concomitant]
     Dosage: .5 DF, BID
  10. CLEXANE [Concomitant]
     Route: 058
  11. FEMIBION [Concomitant]
     Dosage: 1 DF, QD

REACTIONS (9)
  - CERVICAL INCOMPETENCE [None]
  - CERVIX CERCLAGE PROCEDURE [None]
  - DRUG EXPOSURE DURING PREGNANCY [None]
  - DRUG INTERACTION [None]
  - DRUG LEVEL DECREASED [None]
  - NORMAL NEWBORN [None]
  - PRE-ECLAMPSIA [None]
  - PREMATURE LABOUR [None]
  - RENAL DISORDER [None]
